FAERS Safety Report 12056243 (Version 1)
Quarter: 2016Q1

REPORT INFORMATION
  Report Type: Report from Study
  Country: US (occurrence: US)
  Receive Date: 20160209
  Receipt Date: 20160209
  Transmission Date: 20160526
  Serious: No
  Sender: FDA-Public Use
  Company Number: US-ABBVIE-15P-163-1469963-00

PATIENT
  Age: 74 Year
  Sex: Female

DRUGS (1)
  1. HUMIRA [Suspect]
     Active Substance: ADALIMUMAB
     Indication: PSORIASIS
     Route: 058
     Dates: start: 20150529, end: 20150917

REACTIONS (6)
  - Malaise [Unknown]
  - Chills [Unknown]
  - Pyrexia [Unknown]
  - Skin exfoliation [Unknown]
  - Skin fissures [Unknown]
  - Dehydration [Unknown]

NARRATIVE: CASE EVENT DATE: 20150917
